FAERS Safety Report 7459229-0 (Version None)
Quarter: 2011Q2

REPORT INFORMATION
  Report Type: 
  Country: None (occurrence: None)
  Receive Date: 20110505
  Receipt Date: 20110420
  Transmission Date: 20111010
  Serious: Yes (Other)
  Sender: FDA-Public Use
  Company Number: CA-JNJFOC-20110409729

PATIENT
  Sex: Female
  Weight: 52 kg

DRUGS (12)
  1. REMICADE [Suspect]
     Indication: COLITIS ULCERATIVE
     Route: 042
  2. VITAMIN C [Concomitant]
  3. IMURAN [Concomitant]
  4. REMICADE [Suspect]
     Route: 042
  5. REMICADE [Suspect]
     Route: 042
  6. FOLIC ACID [Concomitant]
  7. TUMS [Concomitant]
     Indication: MINERAL SUPPLEMENTATION
  8. ASACOL [Concomitant]
     Dosage: 2 TABS
  9. MICRO-K [Concomitant]
     Dosage: 2 CAPS
  10. NORETHINDRONE/ETHINYL ESTRADIOL [Concomitant]
  11. VITAMIN D [Concomitant]
  12. LACTOBACILLUS BIFIDUS [Concomitant]
     Dosage: CAPS

REACTIONS (7)
  - HOT FLUSH [None]
  - RESPIRATORY DISORDER [None]
  - VULVOVAGINAL MYCOTIC INFECTION [None]
  - PHARYNGITIS STREPTOCOCCAL [None]
  - DIARRHOEA [None]
  - INFUSION RELATED REACTION [None]
  - CONJUNCTIVITIS INFECTIVE [None]
